FAERS Safety Report 25272445 (Version 2)
Quarter: 2025Q4

REPORT INFORMATION
  Report Type: Spontaneous
  Country: EU (occurrence: EU)
  Receive Date: 20250506
  Receipt Date: 20251030
  Transmission Date: 20260117
  Serious: Yes (Other)
  Sender: AIRGAS
  Company Number: EU-AFSSAPS-AVPA2025000363

PATIENT
  Sex: Male

DRUGS (11)
  1. NITROUS OXIDE [Suspect]
     Active Substance: NITROUS OXIDE
     Indication: Product used for unknown indication
  2. CODEINE [Suspect]
     Active Substance: CODEINE
  3. MORPHINE [Suspect]
     Active Substance: MORPHINE
  4. TRAMADOL HYDROCHLORIDE [Suspect]
     Active Substance: TRAMADOL HYDROCHLORIDE
  5. ACETAMINOPHEN\TRAMADOL HYDROCHLORIDE [Suspect]
     Active Substance: ACETAMINOPHEN\TRAMADOL HYDROCHLORIDE
  6. OXYCODONE [Suspect]
     Active Substance: OXYCODONE
  7. BROMAZEPAM [Suspect]
     Active Substance: BROMAZEPAM
  8. DIAZEPAM [Suspect]
     Active Substance: DIAZEPAM
  9. ALPRAZOLAM [Suspect]
     Active Substance: ALPRAZOLAM
  10. DIHYDROCODEINE [Suspect]
     Active Substance: DIHYDROCODEINE
  11. PROMETHAZINE [Suspect]
     Active Substance: PROMETHAZINE HYDROCHLORIDE

REACTIONS (9)
  - Drug dependence [Recovering/Resolving]
  - Formication [Recovering/Resolving]
  - Limb discomfort [Recovering/Resolving]
  - Sensory loss [Recovering/Resolving]
  - Drug dependence [Recovering/Resolving]
  - Motor dysfunction [Recovering/Resolving]
  - Drug dependence [Recovering/Resolving]
  - Drug dependence [Recovering/Resolving]
  - Drug dependence [Recovering/Resolving]
